FAERS Safety Report 8075303-2 (Version None)
Quarter: 2012Q1

REPORT INFORMATION
  Report Type: 
  Country: None (occurrence: None)
  Receive Date: 20120127
  Receipt Date: 20120116
  Transmission Date: 20120608
  Serious: Yes (Other)
  Sender: FDA-Public Use
  Company Number: US-ELI_LILLY_AND_COMPANY-US201107002946

PATIENT
  Sex: Female

DRUGS (17)
  1. KEPPRA [Concomitant]
     Indication: CONVULSION
     Dosage: 1500 MG, EACH EVENING
  2. LORTAB [Concomitant]
     Dosage: UNK UNK, TID
  3. FORTEO [Suspect]
     Dosage: 20 UG, QD
  4. CHOLESTYRAMINE [Concomitant]
     Indication: DIARRHOEA
     Dosage: 1 DF, BID
  5. FORTEO [Suspect]
     Dosage: 20 UG, QD
  6. FORTEO [Suspect]
     Dosage: 20 UG, QD
  7. PRAVASTATIN SODIUM [Concomitant]
     Indication: BLOOD CHOLESTEROL
     Dosage: 20 MG, QD
  8. COMBIVENT [Concomitant]
     Indication: EMPHYSEMA
     Dosage: 2 DF, TID
  9. OMEPRAZOLE [Concomitant]
     Indication: BARRETT'S OESOPHAGUS
     Dosage: 40 MG, QD
  10. FORTEO [Suspect]
     Dosage: 20 UG, QD
  11. LYRICA [Concomitant]
     Dosage: 150 MG, TID
  12. PREMARIN [Concomitant]
     Dosage: 0.62 MG, QD
  13. ENALAPRIL MALEATE [Concomitant]
     Indication: BLOOD PRESSURE
     Dosage: 5 MG, QD
  14. SOMA [Concomitant]
     Dosage: 1 DF, TID
  15. ZONEGRAN [Concomitant]
     Indication: CONVULSION
     Dosage: 200 MG, QD
  16. FORTEO [Suspect]
     Indication: OSTEOPOROSIS
     Dosage: 20 UG, QD
     Dates: start: 20110629
  17. FLUTICASONE PROPIONATE [Concomitant]
     Indication: SINUS DISORDER
     Dosage: 1 DF, BID

REACTIONS (10)
  - INJECTION SITE HAEMORRHAGE [None]
  - ARTHRALGIA [None]
  - OEDEMA PERIPHERAL [None]
  - GRAND MAL CONVULSION [None]
  - DRUG LEVEL DECREASED [None]
  - NASOPHARYNGITIS [None]
  - INJECTION SITE HAEMATOMA [None]
  - DIARRHOEA [None]
  - ACNE [None]
  - CROUP INFECTIOUS [None]
